FAERS Safety Report 4881560-3 (Version None)
Quarter: 2006Q1

REPORT INFORMATION
  Report Type: 
  Country: None (occurrence: None)
  Receive Date: 20060116
  Receipt Date: 20060110
  Transmission Date: 20060701
  Serious: Yes (Hospitalization)
  Sender: FDA-Public Use
  Company Number: US-JNJFOC-20051204539

PATIENT
  Sex: Female
  Weight: 87.09 kg

DRUGS (3)
  1. REMICADE [Suspect]
     Indication: CROHN'S DISEASE
     Route: 042
  2. 6 MP [Suspect]
     Indication: CROHN'S DISEASE
  3. ENTECORT [Concomitant]

REACTIONS (3)
  - BRADYCARDIA [None]
  - MIGRAINE [None]
  - SYSTOLIC HYPERTENSION [None]
